FAERS Safety Report 8136277-9 (Version None)
Quarter: 2012Q1

REPORT INFORMATION
  Report Type: 
  Country: None (occurrence: None)
  Receive Date: 20120210
  Receipt Date: 20120206
  Transmission Date: 20120608
  Serious: Yes (Life-Threatening, Hospitalization, Disabling, Other)
  Sender: FDA-Public Use
  Company Number: 09-AUR-10036

PATIENT
  Age: 57 Year
  Sex: Female
  Weight: 65 kg

DRUGS (8)
  1. BENDROFLUMETHIAZIDE (BENDROFLUMETHIAZIDE) [Suspect]
     Indication: HYPERTENSION
     Dosage: 2.5 MG (2.5 MG, 1 IN 1 D), ORAL
     Route: 048
     Dates: start: 20050101, end: 20080205
  2. MENOPACE (MENOPACE) [Concomitant]
  3. ACETAMINOPHEN [Concomitant]
  4. MAGNESIUM (MAGNESIUM) [Concomitant]
  5. ALTACE [Suspect]
     Indication: HYPERTENSION
     Dosage: 2.5 MG (2.5 MG, 1 IN 1 D), ORAL
     Route: 048
     Dates: start: 20060101, end: 20090205
  6. GARLIC (ALLIUM SATIVUM) [Concomitant]
  7. CITALOPRAM HYDROBROMIDE [Suspect]
     Indication: DEPRESSION
     Dosage: 20 MG (20 MG, 1 IN 1 D), ORAL
     Route: 048
     Dates: start: 20090202, end: 20090205
  8. METRONIDAZOLE [Suspect]
     Indication: TOOTH DISORDER
     Dosage: 600 MG (200 MG, 3 IN 1 D), ORAL
     Route: 048
     Dates: start: 20090202, end: 20090205

REACTIONS (9)
  - DRUG INTERACTION [None]
  - CONVULSION [None]
  - VOMITING [None]
  - THIRST [None]
  - MEMORY IMPAIRMENT [None]
  - HYPONATRAEMIA [None]
  - GAIT DISTURBANCE [None]
  - OSMOTIC DEMYELINATION SYNDROME [None]
  - FEELING HOT [None]
